FAERS Safety Report 10155720 (Version 1)
Quarter: 2014Q2

REPORT INFORMATION
  Report Type: Spontaneous
  Country: GB (occurrence: GB)
  Receive Date: 20140506
  Receipt Date: 20140506
  Transmission Date: 20141212
  Serious: Yes (Disabling)
  Sender: FDA-Public Use
  Company Number: GB-WATSON-2014-08839

PATIENT
  Age: 68 Year
  Sex: Male

DRUGS (1)
  1. PIOGLITAZONE (UNKNOWN) [Suspect]
     Indication: DIABETES MELLITUS
     Dosage: 45 MG, UNK
     Route: 048
     Dates: start: 20101026, end: 20111015

REACTIONS (1)
  - Retinal degeneration [Not Recovered/Not Resolved]
